FAERS Safety Report 22153774 (Version 3)
Quarter: 2023Q2

REPORT INFORMATION
  Report Type: Spontaneous
  Country: US (occurrence: US)
  Receive Date: 20230330
  Receipt Date: 20230626
  Transmission Date: 20230722
  Serious: Yes (Hospitalization, Other)
  Sender: FDA-Public Use
  Company Number: US-BRISTOL-MYERS SQUIBB COMPANY-2023-042891

PATIENT
  Age: 67 Year
  Sex: Male

DRUGS (1)
  1. POMALYST [Suspect]
     Active Substance: POMALIDOMIDE
     Indication: Plasma cell myeloma
     Dosage: TAKE 1 CAPSULE BY MOUTH EVERY DAY ON DAYS 1-14 OF A 28 DAY
     Route: 048
     Dates: start: 20221212

REACTIONS (18)
  - Loss of consciousness [Recovered/Resolved]
  - Off label use [Unknown]
  - Spinal pain [Unknown]
  - Neoplasm malignant [Unknown]
  - Insomnia [Unknown]
  - Weight fluctuation [Unknown]
  - Parkinson^s disease [Unknown]
  - Depression [Unknown]
  - Haemorrhoids [Unknown]
  - Catheter site pain [Unknown]
  - Faeces soft [Unknown]
  - Micturition urgency [Unknown]
  - Dizziness [Unknown]
  - Increased appetite [Unknown]
  - Memory impairment [Unknown]
  - Pain [Unknown]
  - Energy increased [Unknown]
  - Tremor [Unknown]
